FAERS Safety Report 9404842 (Version 2)
Quarter: 2013Q3

REPORT INFORMATION
  Report Type: Spontaneous
  Country: JP (occurrence: JP)
  Receive Date: 20130717
  Receipt Date: 20130719
  Transmission Date: 20140515
  Serious: Yes (Death, Hospitalization)
  Sender: FDA-Public Use
  Company Number: JP-BAYER-2013-083846

PATIENT
  Sex: Female
  Weight: 27 kg

DRUGS (2)
  1. BAYASPIRIN [Suspect]
     Indication: MYOCARDIAL INFARCTION
     Dosage: UNK
     Route: 048
  2. WARFARIN [Interacting]
     Indication: MYOCARDIAL INFARCTION
     Route: 048

REACTIONS (4)
  - Shock haemorrhagic [Fatal]
  - Labelled drug-drug interaction medication error [None]
  - Anal fissure [None]
  - Colitis ischaemic [Fatal]
